FAERS Safety Report 6479819-1 (Version None)
Quarter: 2009Q4

REPORT INFORMATION
  Report Type: 
  Country: None (occurrence: None)
  Receive Date: 20091208
  Receipt Date: 20091204
  Transmission Date: 20100525
  Serious: Yes (Other)
  Sender: FDA-Public Use
  Company Number: US-ROCHE-639041

PATIENT
  Sex: Female

DRUGS (11)
  1. KLONOPIN [Suspect]
     Indication: ANXIETY
     Dosage: OTHER INDICATION: SLEEP DISORDER.
     Route: 065
     Dates: end: 20090401
  2. REBIF [Suspect]
     Indication: MULTIPLE SCLEROSIS
     Route: 058
     Dates: start: 20090123, end: 20090413
  3. CELEXA [Suspect]
     Indication: DEPRESSION
     Route: 065
     Dates: end: 20090401
  4. GABAPENTIN [Suspect]
     Indication: PAIN
     Route: 065
     Dates: end: 20090401
  5. CYTOXAN [Suspect]
     Indication: MULTIPLE SCLEROSIS
     Route: 065
     Dates: end: 20090401
  6. ACYCLOVIR [Concomitant]
     Indication: MULTIPLE SCLEROSIS
  7. VITAMINE D [Concomitant]
     Dosage: DRUG: VITAMIN D
  8. OMEGA-6 FATTY ACIDS [Concomitant]
     Dates: end: 20090401
  9. MOTRIN [Concomitant]
     Indication: PREMEDICATION
     Dates: start: 20090101, end: 20090401
  10. TYLENOL (CAPLET) [Concomitant]
     Indication: PREMEDICATION
     Dates: start: 20090101, end: 20090401
  11. SOLU-MEDROL [Concomitant]
     Indication: MULTIPLE SCLEROSIS
     Dates: start: 20090501

REACTIONS (3)
  - AUTOIMMUNE HEPATITIS [None]
  - HEPATITIS [None]
  - HYPOAESTHESIA [None]
